FAERS Safety Report 22982246 (Version 3)
Quarter: 2023Q4

REPORT INFORMATION
  Report Type: Spontaneous
  Country: DK (occurrence: TR)
  Receive Date: 20230926
  Receipt Date: 20231116
  Transmission Date: 20240110
  Serious: Yes (Hospitalization)
  Sender: FDA-Public Use
  Company Number: DK-NOVOPROD-1116337

PATIENT
  Age: 67 Year
  Sex: Male
  Weight: 81 kg

DRUGS (1)
  1. OZEMPIC [Suspect]
     Active Substance: SEMAGLUTIDE
     Indication: Type 2 diabetes mellitus
     Dosage: 3 MG IN STEAD OF 1 MG.(THIS DOSE/TREATMENT HAS ONLY BEEN TAKEN ONCE.)
     Dates: start: 20211110

REACTIONS (9)
  - Coma [Recovered/Resolved]
  - Cerebral infarction [Recovered/Resolved]
  - Aphasia [Recovered/Resolved]
  - Hemiparesis [Recovered/Resolved]
  - Prerenal failure [Unknown]
  - Pneumonia [Recovered/Resolved]
  - Device issue [Unknown]
  - Incorrect dose administered by device [Unknown]
  - Decubitus ulcer [Recovered/Resolved]

NARRATIVE: CASE EVENT DATE: 20211110
